FAERS Safety Report 9893079 (Version 1)
Quarter: 2014Q1

REPORT INFORMATION
  Report Type: Other
  Country: JP (occurrence: JP)
  Receive Date: 20140213
  Receipt Date: 20140213
  Transmission Date: 20141002
  Serious: Yes (Hospitalization)
  Sender: FDA-Public Use
  Company Number: JP-BRISTOL-MYERS SQUIBB COMPANY-20191623

PATIENT
  Age: 88 Year
  Sex: Male

DRUGS (1)
  1. HYDREA [Suspect]

REACTIONS (3)
  - Raoultella ornithinolytica infection [Unknown]
  - Diverticulitis [Unknown]
  - Diverticulum intestinal haemorrhagic [Unknown]
